FAERS Safety Report 4929449-5 (Version None)
Quarter: 2006Q1

REPORT INFORMATION
  Report Type: 
  Country: None (occurrence: None)
  Receive Date: 20060224
  Receipt Date: 20060213
  Transmission Date: 20060701
  Serious: Yes (Other)
  Sender: FDA-Public Use
  Company Number: 2006021681

PATIENT
  Age: 13 Year
  Sex: Female
  Weight: 49.4 kg

DRUGS (2)
  1. GABAPENTIN [Suspect]
     Indication: COMPLEX REGIONAL PAIN SYNDROME
     Dosage: (300 MG), ORAL
     Route: 048
     Dates: start: 20060102
  2. NORTRIPTYLINE HCL [Concomitant]

REACTIONS (2)
  - BRONCHOSPASM [None]
  - WHEEZING [None]
